FAERS Safety Report 11342100 (Version 1)
Quarter: 2015Q3

REPORT INFORMATION
  Report Type: Spontaneous
  Country: US (occurrence: US)
  Receive Date: 20150805
  Receipt Date: 20150805
  Transmission Date: 20151125
  Serious: No
  Sender: FDA-Public Use
  Company Number: US-PFIZER INC-2015246899

PATIENT
  Age: 69 Year
  Sex: Female

DRUGS (1)
  1. IBRANCE [Suspect]
     Active Substance: PALBOCICLIB
     Indication: BREAST CANCER
     Dosage: 125 MG, CYCLIC (1 CAPSULE DAILY FOR 21 DAYS THEN 0FF 7 DAYS)
     Route: 048

REACTIONS (3)
  - Diarrhoea [Unknown]
  - Alopecia [Unknown]
  - Nausea [Unknown]
